FAERS Safety Report 6556136-2 (Version None)
Quarter: 2010Q1

REPORT INFORMATION
  Report Type: 
  Country: None (occurrence: None)
  Receive Date: 20100128
  Receipt Date: 20090508
  Transmission Date: 20100710
  Serious: Yes (Hospitalization, Other)
  Sender: FDA-Public Use
  Company Number: US-TEVA-192983USA

PATIENT
  Sex: Female

DRUGS (11)
  1. COPAXONE [Suspect]
     Indication: MULTIPLE SCLEROSIS
     Route: 058
     Dates: start: 20010201
  2. AMANTADINE HCL [Concomitant]
  3. ESTRATEST H.S. [Concomitant]
  4. MONTELUKAST [Concomitant]
  5. TROSPIUM CHLORIDE [Concomitant]
  6. BACLOFEN [Concomitant]
  7. SUMATRIPTAN [Concomitant]
  8. DIAZEPAM [Concomitant]
  9. GABAPENTIN [Concomitant]
  10. METOCLOPRAMIDE [Concomitant]
  11. MULTI-VITAMIN [Concomitant]

REACTIONS (3)
  - DYSPNOEA [None]
  - MULTIPLE SCLEROSIS RELAPSE [None]
  - URINARY TRACT INFECTION [None]
